FAERS Safety Report 12965949 (Version 3)
Quarter: 2016Q4

REPORT INFORMATION
  Report Type: Spontaneous
  Country: US (occurrence: US)
  Receive Date: 20161122
  Receipt Date: 20161205
  Transmission Date: 20170207
  Serious: Yes (Other)
  Sender: FDA-Public Use
  Company Number: US-BIOMARINAP-US-2016-111891

PATIENT
  Sex: Female
  Weight: 50 kg

DRUGS (1)
  1. KUVAN [Suspect]
     Active Substance: SAPROPTERIN DIHYDROCHLORIDE
     Indication: PHENYLKETONURIA
     Dosage: 1000 MG, QD
     Route: 048
     Dates: start: 20160923

REACTIONS (1)
  - Calculus bladder [Recovered/Resolved]
